FAERS Safety Report 8014607-6 (Version None)
Quarter: 2011Q4

REPORT INFORMATION
  Report Type: 
  Country: None (occurrence: None)
  Receive Date: 20111229
  Receipt Date: 20111222
  Transmission Date: 20120403
  Serious: Yes (Other)
  Sender: FDA-Public Use
  Company Number: US-ABBOTT-09P-163-0588081-00

PATIENT
  Sex: Male
  Weight: 89.438 kg

DRUGS (4)
  1. HUMIRA [Suspect]
     Indication: CROHN'S DISEASE
     Route: 058
     Dates: start: 20040101, end: 20090501
  2. MIRALAX [Suspect]
     Indication: COLONOSCOPY
     Dates: start: 20111223, end: 20111223
  3. HUMIRA [Suspect]
     Indication: RHEUMATOID ARTHRITIS
  4. DULCOLAX [Suspect]
     Indication: COLONOSCOPY
     Dates: start: 20111223, end: 20111223

REACTIONS (11)
  - UVEITIS [None]
  - JOINT SWELLING [None]
  - SKIN LESION [None]
  - ANAL FISTULA [None]
  - RHEUMATOID ARTHRITIS [None]
  - BLISTER [None]
  - GAIT DISTURBANCE [None]
  - MOBILITY DECREASED [None]
  - CROHN'S DISEASE [None]
  - OPEN WOUND [None]
  - STAPHYLOCOCCAL INFECTION [None]
